FAERS Safety Report 6915696-X (Version None)
Quarter: 2010Q3

REPORT INFORMATION
  Report Type: 
  Country: None (occurrence: None)
  Receive Date: 20100804
  Receipt Date: 20091216
  Transmission Date: 20110219
  Serious: Yes (Hospitalization)
  Sender: FDA-Public Use
  Company Number: 003489

PATIENT
  Age: 65 Year
  Sex: Female

DRUGS (4)
  1. LEVETIRACETAM [Suspect]
     Indication: NERVOUS SYSTEM DISORDER
     Dosage: 250 MG TID ORAL
     Route: 048
  2. ENALAPRIL [Concomitant]
  3. CLONAZEPAM [Concomitant]
  4. SERTRALINE HYDROCHLORIDE [Concomitant]

REACTIONS (7)
  - CONFUSIONAL STATE [None]
  - DEPRESSED LEVEL OF CONSCIOUSNESS [None]
  - DISORIENTATION [None]
  - FALL [None]
  - INAPPROPRIATE ANTIDIURETIC HORMONE SECRETION [None]
  - MAJOR DEPRESSION [None]
  - SENSORY LOSS [None]
